FAERS Safety Report 16319785 (Version 1)
Quarter: 2019Q2

REPORT INFORMATION
  Report Type: Spontaneous
  Country: US (occurrence: US)
  Receive Date: 20190516
  Receipt Date: 20190516
  Transmission Date: 20190711
  Serious: Yes (Hospitalization, Other)
  Sender: FDA-Public Use
  Company Number: US-INCYTE CORPORATION-2019IN004661

PATIENT

DRUGS (1)
  1. JAKAFI [Suspect]
     Active Substance: RUXOLITINIB
     Indication: ACUTE MYELOID LEUKAEMIA
     Dosage: 10 MILLIGRAM, QD
     Route: 048
     Dates: start: 20170829

REACTIONS (4)
  - Inappropriate schedule of product administration [Unknown]
  - Pneumonia [Unknown]
  - Off label use [Unknown]
  - Pyrexia [Unknown]
